FAERS Safety Report 11576534 (Version 1)
Quarter: 2015Q3

REPORT INFORMATION
  Report Type: Spontaneous
  Country: US (occurrence: US)
  Receive Date: 20150930
  Receipt Date: 20150930
  Transmission Date: 20151125
  Serious: No
  Sender: FDA-Public Use
  Company Number: US-BAYER-2015-431512

PATIENT
  Age: 69 Year
  Sex: Male
  Weight: 102.4 kg

DRUGS (5)
  1. CLARITIN REDITABS [Suspect]
     Active Substance: LORATADINE
     Indication: SEASONAL ALLERGY
     Dosage: 1 DF, BID
     Route: 048
     Dates: start: 20150916
  2. BAYER LOW DOSE [Concomitant]
     Active Substance: ASPIRIN
     Indication: ISCHAEMIC HEART DISEASE PROPHYLAXIS
     Dosage: UNK
  3. CLARITIN REDITABS [Suspect]
     Active Substance: LORATADINE
     Indication: HEADACHE
  4. CLARITIN REDITABS [Suspect]
     Active Substance: LORATADINE
     Indication: RESPIRATORY TRACT CONGESTION
  5. CLARITIN REDITABS [Suspect]
     Active Substance: LORATADINE
     Indication: NAUSEA

REACTIONS (4)
  - Headache [None]
  - Drug ineffective [None]
  - Nausea [None]
  - Product use issue [None]
